FAERS Safety Report 10134061 (Version 1)
Quarter: 2014Q2

REPORT INFORMATION
  Report Type: Spontaneous
  Country: US (occurrence: US)
  Receive Date: 20140428
  Receipt Date: 20140428
  Transmission Date: 20141212
  Serious: No
  Sender: FDA-Public Use
  Company Number: US-SANOFI-AVENTIS-2013SA068723

PATIENT
  Sex: 0

DRUGS (5)
  1. ALLEGRA [Suspect]
     Route: 065
  2. AMLODIPINE BESILATE [Suspect]
     Route: 065
  3. ZANTAC [Suspect]
     Route: 065
  4. BENICAR [Suspect]
     Route: 065
  5. AMOXICILLIN [Suspect]
     Route: 065

REACTIONS (3)
  - Palpitations [Unknown]
  - Feeling abnormal [Unknown]
  - Drug interaction [Unknown]
